FAERS Safety Report 6857641-1 (Version None)
Quarter: 2010Q3

REPORT INFORMATION
  Report Type: 
  Country: None (occurrence: None)
  Receive Date: 20100719
  Receipt Date: 20080301
  Transmission Date: 20110219
  Serious: No
  Sender: FDA-Public Use
  Company Number: US-PFIZER INC-2008008675

PATIENT
  Age: 39 Year
  Sex: Female

DRUGS (2)
  1. CHANTIX [Suspect]
     Indication: SMOKING CESSATION THERAPY
     Route: 048
     Dates: start: 20070618, end: 20070801
  2. ORAL CONTRACEPTIVE NOS [Concomitant]

REACTIONS (8)
  - ANXIETY [None]
  - DEPRESSION [None]
  - FATIGUE [None]
  - INAPPROPRIATE AFFECT [None]
  - MIDDLE INSOMNIA [None]
  - RESTLESSNESS [None]
  - SLEEP DISORDER [None]
  - UNEVALUABLE EVENT [None]
